FAERS Safety Report 4715871-9 (Version None)
Quarter: 2005Q3

REPORT INFORMATION
  Report Type: 
  Country: None (occurrence: None)
  Receive Date: 20050713
  Receipt Date: 20050507
  Transmission Date: 20060218
  Serious: Yes (Disabling)
  Sender: FDA-Public Use
  Company Number: HQWYE653404APR05

PATIENT
  Age: 28 Year
  Sex: Female
  Weight: 63.56 kg

DRUGS (7)
  1. EFFEXOR XR [Suspect]
     Indication: SUICIDAL IDEATION
     Dosage: SEE IMAGE
     Dates: start: 20050302, end: 20050101
  2. EFFEXOR XR [Suspect]
     Indication: SUICIDAL IDEATION
     Dosage: SEE IMAGE
     Dates: start: 20021001, end: 20050301
  3. EFFEXOR XR [Suspect]
     Indication: SUICIDAL IDEATION
     Dosage: SEE IMAGE
     Dates: start: 20050101
  4. TRILEPTAL [Concomitant]
  5. GABAPENTIN [Concomitant]
  6. TEMAZEPAM [Concomitant]
  7. LITHOBID [Concomitant]

REACTIONS (5)
  - ASTHENIA [None]
  - BLINDNESS TRANSIENT [None]
  - DRUG WITHDRAWAL SYNDROME [None]
  - HOT FLUSH [None]
  - SOMNOLENCE [None]
